FAERS Safety Report 13551391 (Version 3)
Quarter: 2017Q3

REPORT INFORMATION
  Report Type: Spontaneous
  Country: US (occurrence: US)
  Receive Date: 20170516
  Receipt Date: 20170710
  Transmission Date: 20171127
  Serious: Yes (Other)
  Sender: FDA-Public Use
  Company Number: US-OTSUKA-2017_010874

PATIENT
  Age: 40 Year
  Sex: Female
  Weight: 54.42 kg

DRUGS (2)
  1. ABILIFY MAINTENA [Suspect]
     Active Substance: ARIPIPRAZOLE
     Indication: PRODUCT USED FOR UNKNOWN INDICATION
     Dosage: 300 MG, QM (MONTHLY)
     Route: 030
     Dates: start: 20170324
  2. ABILIFY MAINTENA [Suspect]
     Active Substance: ARIPIPRAZOLE
     Dosage: UNK
     Route: 030
     Dates: start: 20170424

REACTIONS (10)
  - Musculoskeletal stiffness [Recovering/Resolving]
  - Major depression [Not Recovered/Not Resolved]
  - Musculoskeletal pain [Recovering/Resolving]
  - Post-traumatic stress disorder [Not Recovered/Not Resolved]
  - Incorrect dose administered [Unknown]
  - Off label use [Unknown]
  - Attention deficit/hyperactivity disorder [Not Recovered/Not Resolved]
  - Gait disturbance [Recovering/Resolving]
  - Psychotic disorder [Not Recovered/Not Resolved]
  - Bipolar disorder [Not Recovered/Not Resolved]

NARRATIVE: CASE EVENT DATE: 20170324
